FAERS Safety Report 8468780-6 (Version None)
Quarter: 2012Q2

REPORT INFORMATION
  Report Type: 
  Country: None (occurrence: None)
  Receive Date: 20120626
  Receipt Date: 20120618
  Transmission Date: 20120825
  Serious: Yes (Other)
  Sender: FDA-Public Use
  Company Number: CA-JNJFOC-20120608793

PATIENT
  Sex: Male
  Weight: 84 kg

DRUGS (3)
  1. REMICADE [Suspect]
     Indication: CROHN'S DISEASE
     Route: 042
     Dates: start: 20110101
  2. KEPPRA [Concomitant]
     Route: 065
  3. CHOLESTYRAMINE [Concomitant]
     Route: 065

REACTIONS (2)
  - INFLUENZA LIKE ILLNESS [None]
  - WEIGHT DECREASED [None]
